FAERS Safety Report 8283370-6 (Version None)
Quarter: 2012Q2

REPORT INFORMATION
  Report Type: 
  Country: None (occurrence: None)
  Receive Date: 20120413
  Receipt Date: 20120410
  Transmission Date: 20120825
  Serious: Yes (Hospitalization, Other)
  Sender: FDA-Public Use
  Company Number: CA-BAYER-2012-022403

PATIENT
  Sex: Female

DRUGS (3)
  1. COUMADIN [Suspect]
     Indication: PHLEBITIS
     Dosage: UNK
     Dates: start: 20090101
  2. ZITHROMAX [Suspect]
     Indication: INFLUENZA
     Dosage: UNK
     Dates: start: 20090101
  3. AVELOX [Suspect]

REACTIONS (4)
  - DYSPHONIA [None]
  - ASTHENIA [None]
  - ANAEMIA HAEMOLYTIC AUTOIMMUNE [None]
  - PALLOR [None]
